FAERS Safety Report 23961239 (Version 1)
Quarter: 2024Q2

REPORT INFORMATION
  Report Type: Spontaneous
  Country: CN (occurrence: CN)
  Receive Date: 20240611
  Receipt Date: 20240611
  Transmission Date: 20240715
  Serious: Yes (Hospitalization, Disabling, Other)
  Sender: FDA-Public Use
  Company Number: CN-BAYER-2024A084097

PATIENT
  Age: 96 Year
  Sex: Male
  Weight: 50 kg

DRUGS (1)
  1. AVELOX [Suspect]
     Active Substance: MOXIFLOXACIN HYDROCHLORIDE
     Indication: Respiratory tract infection
     Dosage: 250 ML, QD
     Route: 041
     Dates: start: 20240410, end: 20240411

REACTIONS (4)
  - Epilepsy [Recovering/Resolving]
  - Convulsions local [Recovering/Resolving]
  - Gaze palsy [Recovering/Resolving]
  - Unresponsive to stimuli [Recovering/Resolving]

NARRATIVE: CASE EVENT DATE: 20240411
